FAERS Safety Report 8770544 (Version 3)
Quarter: 2012Q4

REPORT INFORMATION
  Report Type: 
  Country: SE (occurrence: SE)
  Receive Date: 20120906
  Receipt Date: 20120921
  Transmission Date: 20130627
  Serious: Yes (Life-Threatening, Hospitalization, Other)
  Sender: FDA-Public Use
  Company Number: PHHY2012SE077290

PATIENT
  Sex: Male

DRUGS (6)
  1. TASIGNA [Suspect]
     Indication: CHRONIC LEUKAEMIA
     Dosage: 200 mg, QD
     Route: 048
     Dates: start: 1998
  2. TASIGNA [Suspect]
     Dosage: 200 mg in the AM
  3. WARAN [Concomitant]
  4. LOSARTAN [Concomitant]
  5. PRAVASTATIN [Concomitant]
     Indication: HYPERTENSION
     Dosage: 20 mg, QD
     Route: 048
  6. OMEPRAZOL [Concomitant]

REACTIONS (7)
  - Arthropathy [Not Recovered/Not Resolved]
  - Musculoskeletal disorder [Unknown]
  - Muscle spasms [Not Recovered/Not Resolved]
  - Vascular occlusion [Recovered/Resolved]
  - Angina pectoris [Unknown]
  - Chest pain [Not Recovered/Not Resolved]
  - Muscle atrophy [Unknown]
